FAERS Safety Report 7570295-4 (Version None)
Quarter: 2011Q2

REPORT INFORMATION
  Report Type: 
  Country: None (occurrence: None)
  Receive Date: 20110620
  Receipt Date: 20110608
  Transmission Date: 20111010
  Serious: Yes (Death)
  Sender: FDA-Public Use
  Company Number: UTC-007757

PATIENT
  Age: 46 Year
  Sex: Female
  Weight: 89 kg

DRUGS (1)
  1. TYVASO [Suspect]
     Indication: COR PULMONALE CHRONIC
     Dosage: 18-54 MICROGRAMS (EVERY OTHER DAY),INHALATION
     Route: 055
     Dates: start: 20110121

REACTIONS (1)
  - DEATH [None]
